FAERS Safety Report 9510742 (Version 1)
Quarter: 2013Q3

REPORT INFORMATION
  Report Type: Spontaneous
  Country: US (occurrence: US)
  Receive Date: 20130910
  Receipt Date: 20130910
  Transmission Date: 20140515
  Serious: Yes (Other)
  Sender: FDA-Public Use
  Company Number: US-AMGEN-USASP2013062535

PATIENT
  Age: 51 Year
  Sex: Female

DRUGS (2)
  1. ENBREL [Suspect]
     Indication: PSORIATIC ARTHROPATHY
     Dosage: 50 MG, EVERY 4 DAYS
     Route: 065
     Dates: start: 20020101
  2. ENBREL [Suspect]
     Indication: PSORIASIS

REACTIONS (9)
  - Tendon operation [Recovered/Resolved]
  - Foot deformity [Recovered/Resolved]
  - Bunion operation [Recovered/Resolved]
  - Blood count abnormal [Recovered/Resolved]
  - Skin plaque [Recovered/Resolved]
  - Pain in extremity [Recovered/Resolved]
  - Injection site bruising [Not Recovered/Not Resolved]
  - Injection site pain [Recovered/Resolved]
  - Injection site reaction [Not Recovered/Not Resolved]
